FAERS Safety Report 4626410-5 (Version None)
Quarter: 2005Q1

REPORT INFORMATION
  Report Type: 
  Country: None (occurrence: None)
  Receive Date: 20050330
  Receipt Date: 20050318
  Transmission Date: 20050727
  Serious: Yes (Other)
  Sender: FDA-Public Use
  Company Number: 2005047708

PATIENT
  Age: 22 Year
  Sex: Female
  Weight: 56.6996 kg

DRUGS (1)
  1. DEPO-PROVERA [Suspect]
     Indication: CONTRACEPTION
     Dosage: (150 MG, INTERVAL:  EVERY10-13 WKS), INTRAMUSCULAR
     Route: 030
     Dates: start: 20050108

REACTIONS (3)
  - BIOPSY CERVIX ABNORMAL [None]
  - PRECANCEROUS CELLS PRESENT [None]
  - VAGINAL HAEMORRHAGE [None]
